FAERS Safety Report 20711451 (Version 1)
Quarter: 2022Q2

REPORT INFORMATION
  Report Type: Spontaneous
  Country: US (occurrence: None)
  Receive Date: 20220414
  Receipt Date: 20220414
  Transmission Date: 20220721
  Serious: Yes (Other)
  Sender: FDA-Public Use
  Company Number: None

PATIENT
  Sex: Female

DRUGS (2)
  1. SEVELAMER [Suspect]
     Active Substance: SEVELAMER
  2. VELPHORO [Suspect]
     Active Substance: SUCROFERRIC OXYHYDROXIDE

REACTIONS (4)
  - Drug ineffective [None]
  - Feeling abnormal [None]
  - Nausea [None]
  - Abdominal pain upper [None]
